FAERS Safety Report 7634200-4 (Version None)
Quarter: 2011Q3

REPORT INFORMATION
  Report Type: 
  Country: None (occurrence: None)
  Receive Date: 20110725
  Receipt Date: 20110517
  Transmission Date: 20111222
  Serious: No
  Sender: FDA-Public Use
  Company Number: US-B.I. PHARMACEUTICALS,INC./RIDGEFIELD-2011-BP-13331BP

PATIENT
  Sex: Female

DRUGS (8)
  1. ASPIRIN [Concomitant]
     Indication: CEREBROVASCULAR ACCIDENT PROPHYLAXIS
     Dosage: 325 MG
     Route: 048
  2. WARFARIN [Concomitant]
     Indication: CEREBROVASCULAR ACCIDENT PROPHYLAXIS
     Dosage: 4 MG
     Route: 048
     Dates: start: 20110315
  3. LISINOPRIL [Concomitant]
     Indication: HYPERTENSION
     Dosage: 10 MG
     Route: 048
  4. LEVOXYL [Concomitant]
     Indication: THYROID DISORDER
     Dosage: 0.05 MG
     Route: 048
  5. PRADAXA [Suspect]
     Indication: ATRIAL FIBRILLATION
     Dosage: 300 MG
     Route: 048
     Dates: start: 20101115, end: 20110315
  6. ACTONEL [Concomitant]
     Indication: OSTEOPOROSIS
     Route: 048
  7. DILTIAZEM [Concomitant]
     Indication: HYPERTENSION
     Dosage: 180 MG
     Route: 048
     Dates: start: 20110501
  8. CRESTOR [Concomitant]
     Indication: BLOOD CHOLESTEROL INCREASED
     Dosage: 5 MG
     Route: 048

REACTIONS (3)
  - DYSPEPSIA [None]
  - DYSGEUSIA [None]
  - ABDOMINAL PAIN UPPER [None]
